FAERS Safety Report 19647351 (Version 1)
Quarter: 2021Q3

REPORT INFORMATION
  Report Type: Other
  Country: BE (occurrence: BE)
  Receive Date: 20210802
  Receipt Date: 20210802
  Transmission Date: 20211014
  Serious: Yes (Other)
  Sender: FDA-Public Use
  Company Number: BE-ROCHE-2880029

PATIENT

DRUGS (4)
  1. AZATHIOPRINE. [Suspect]
     Active Substance: AZATHIOPRINE
     Indication: IMMUNOSUPPRESSION
     Route: 065
  2. MYCOPHENOLATE MOFETIL. [Suspect]
     Active Substance: MYCOPHENOLATE MOFETIL
     Indication: IMMUNOSUPPRESSION
     Route: 065
  3. SIROLIMUS. [Suspect]
     Active Substance: SIROLIMUS
     Indication: IMMUNOSUPPRESSION
     Route: 065
  4. EVEROLIMUS. [Suspect]
     Active Substance: EVEROLIMUS
     Indication: IMMUNOSUPPRESSION
     Route: 065

REACTIONS (13)
  - Gastrointestinal disorder [Unknown]
  - Haemolysis [Unknown]
  - Oedema [Unknown]
  - Infection [Unknown]
  - Transplant rejection [Unknown]
  - Migraine [Unknown]
  - Benign neoplasm [Unknown]
  - Thrombotic microangiopathy [Unknown]
  - Pneumonitis [Unknown]
  - Haemolytic uraemic syndrome [Unknown]
  - Cytomegalovirus infection [Unknown]
  - Neurotoxicity [Unknown]
  - Leukopenia [Unknown]
